FAERS Safety Report 26080105 (Version 3)
Quarter: 2025Q4

REPORT INFORMATION
  Report Type: Spontaneous
  Country: EU (occurrence: EU)
  Receive Date: 20251124
  Receipt Date: 20251209
  Transmission Date: 20260118
  Serious: Yes (Other)
  Sender: SANDOZ
  Company Number: EU-AMGEN-DEUSP2025213621

PATIENT
  Age: 75 Year
  Sex: Male

DRUGS (6)
  1. ETANERCEPT [Suspect]
     Active Substance: ETANERCEPT
     Indication: Inflammation
     Dosage: 25 MG
     Route: 058
  2. ETANERCEPT [Suspect]
     Active Substance: ETANERCEPT
     Indication: Prophylaxis
     Dosage: 25 MG
     Route: 058
  3. CYCLOPHOSPHAMIDE [Concomitant]
     Active Substance: CYCLOPHOSPHAMIDE
     Indication: Glioblastoma
     Dosage: 60 MG/KG
     Route: 042
  4. CYCLOPHOSPHAMIDE [Concomitant]
     Active Substance: CYCLOPHOSPHAMIDE
     Dosage: 60 MG/KG
     Route: 042
  5. TOCILIZUMAB [Concomitant]
     Active Substance: TOCILIZUMAB
     Indication: Inflammation
     Dosage: 4 MG/KG
     Route: 042
  6. TOCILIZUMAB [Concomitant]
     Active Substance: TOCILIZUMAB
     Indication: Prophylaxis
     Dosage: 4 MG/KG
     Route: 042

REACTIONS (2)
  - Glioblastoma [Recovered/Resolved]
  - Off label use [Unknown]
